FAERS Safety Report 7651637-8 (Version None)
Quarter: 2011Q3

REPORT INFORMATION
  Report Type: 
  Country: None (occurrence: None)
  Receive Date: 20110802
  Receipt Date: 20110720
  Transmission Date: 20111222
  Serious: Yes (Other)
  Sender: FDA-Public Use
  Company Number: GB-BAYER-2011-065624

PATIENT
  Sex: Female

DRUGS (1)
  1. RENNIE PEPPERMINT [Suspect]

REACTIONS (4)
  - THROAT TIGHTNESS [None]
  - URTICARIA [None]
  - SWELLING FACE [None]
  - HYPERSENSITIVITY [None]
